FAERS Safety Report 8986700 (Version 1)
Quarter: 2012Q4

REPORT INFORMATION
  Report Type: 
  Country: DE (occurrence: DE)
  Receive Date: 20121226
  Receipt Date: 20121226
  Transmission Date: 20130627
  Serious: Yes (Death)
  Sender: FDA-Public Use
  Company Number: DE-ROCHE-709748

PATIENT

DRUGS (6)
  1. RITUXIMAB [Suspect]
     Indication: B-CELL LYMPHOMA
     Route: 065
  2. CYCLOPHOSPHAMIDE [Suspect]
     Indication: B-CELL LYMPHOMA
     Dosage: dose cycle 1, 1500 mg/m2, cycle 2, 3: 4500 mg/m2, cycle 4: 6000 mg/m2
     Route: 065
  3. DOXORUBICIN HYDROCHLORIDE [Suspect]
     Indication: B-CELL LYMPHOMA
     Route: 065
  4. VINCRISTINE [Suspect]
     Indication: B-CELL LYMPHOMA
     Route: 065
  5. PREDNISONE [Suspect]
     Indication: B-CELL LYMPHOMA
     Dosage: dose cycle 1, 600 mg/m2, cycle 2, 3: 960 mg/m2, cycle 4: 1480 mg/m2
     Route: 065
  6. ETOPOSIDE [Suspect]
     Indication: B-CELL LYMPHOMA
     Dosage: cycle 1: 600 mg/m2, cycle 2, 3: 960 mg/m2, cycle 4: 1480 mg/m2
     Route: 065

REACTIONS (1)
  - Death [Fatal]
